FAERS Safety Report 4966422-5 (Version None)
Quarter: 2006Q2

REPORT INFORMATION
  Report Type: 
  Country: None (occurrence: None)
  Receive Date: 20060407
  Receipt Date: 20060329
  Transmission Date: 20061013
  Serious: Yes (Hospitalization)
  Sender: FDA-Public Use
  Company Number: DE-ROCHE-442218

PATIENT
  Age: 67 Year
  Sex: Male

DRUGS (16)
  1. MYCOPHENOLATE MOFETIL [Suspect]
     Route: 065
     Dates: start: 20050123, end: 20050331
  2. MYCOPHENOLATE MOFETIL [Suspect]
     Route: 065
     Dates: start: 20050401, end: 20050504
  3. MYCOPHENOLATE MOFETIL [Suspect]
     Route: 065
     Dates: start: 20050505, end: 20051103
  4. TACROLIMUS [Suspect]
     Dosage: ADJUSTMENT TO REACH PRE-DEFINED TARGET LEVELS.
     Route: 065
     Dates: start: 20050123
  5. METHYLPREDNISOLONE [Suspect]
     Route: 065
     Dates: start: 20050123
  6. VALGANCICLOVIR [Concomitant]
     Dates: start: 20050124, end: 20050418
  7. COTRIMOXAZOLE [Concomitant]
     Dates: start: 20050123, end: 20051026
  8. PIPERACILLIN [Concomitant]
     Dates: start: 20050123, end: 20050127
  9. FLUCLOXACILLIN [Concomitant]
     Dates: start: 20050123, end: 20050127
  10. CEFUROXIM [Concomitant]
     Dates: start: 20050128, end: 20050207
  11. FUROSEMIDE [Concomitant]
     Dates: start: 20050125
  12. AMOXICILLIN [Concomitant]
     Dates: start: 20050615, end: 20050620
  13. BENAZEPRIL HYDROCHLORIDE [Concomitant]
     Dates: start: 20050329
  14. FLUVASTATIN [Concomitant]
     Dates: start: 20050207
  15. INSULIN [Concomitant]
     Dates: start: 20020601
  16. METOPROLOL SUCCINATE [Concomitant]
     Dates: start: 20050418

REACTIONS (3)
  - ADVERSE EVENT [None]
  - DIABETIC GANGRENE [None]
  - TOE AMPUTATION [None]
